FAERS Safety Report 19821277 (Version 1)
Quarter: 2021Q3

REPORT INFORMATION
  Report Type: Spontaneous
  Country: US (occurrence: US)
  Receive Date: 20210913
  Receipt Date: 20210913
  Transmission Date: 20211014
  Serious: Yes (Hospitalization)
  Sender: FDA-Public Use
  Company Number: US-MYLANLABS-2021M1060192

PATIENT
  Age: 26 Year
  Sex: Female

DRUGS (6)
  1. NAFCILLIN [Interacting]
     Active Substance: NAFCILLIN SODIUM
     Indication: CEREBRAL DISORDER
  2. METHADONE [Interacting]
     Active Substance: METHADONE HYDROCHLORIDE
     Indication: DRUG USE DISORDER
     Dosage: 65 MILLIGRAM, QD
     Route: 065
  3. METHADONE [Interacting]
     Active Substance: METHADONE HYDROCHLORIDE
     Dosage: 140 MILLIGRAM, QD, THE DOSE WAS FIRST RESTORED TO 65 MG/DAY, AND THEN INCREASED
     Route: 065
  4. NAFCILLIN [Suspect]
     Active Substance: NAFCILLIN SODIUM
     Indication: SEPTIC EMBOLUS
     Dosage: 2 GRAM, Q4H
     Route: 065
  5. METHADONE [Interacting]
     Active Substance: METHADONE HYDROCHLORIDE
     Dosage: 30 MILLIGRAM, QD
     Route: 065
  6. CEFAZOLIN [Concomitant]
     Active Substance: CEFAZOLIN
     Indication: ENDOCARDITIS
     Dosage: UNK
     Route: 065

REACTIONS (2)
  - Drug interaction [Unknown]
  - Withdrawal syndrome [Not Recovered/Not Resolved]
